FAERS Safety Report 7390234-9 (Version None)
Quarter: 2011Q2

REPORT INFORMATION
  Report Type: 
  Country: None (occurrence: None)
  Receive Date: 20110401
  Receipt Date: 20101109
  Transmission Date: 20111010
  Serious: Yes (Life-Threatening, Hospitalization)
  Sender: FDA-Public Use
  Company Number: DE-PFIZER INC-2007325952

PATIENT
  Age: 16 Year
  Sex: Female

DRUGS (2)
  1. IBUPROFEN [Suspect]
     Indication: SUICIDE ATTEMPT
     Dosage: DOSE UNKNOWN
     Dates: start: 20070501
  2. BETADORM [Suspect]
     Indication: SUICIDE ATTEMPT
     Dosage: APPROXIMATELY 5000 MG
     Dates: start: 20070501

REACTIONS (5)
  - PANCREATIC PSEUDOCYST [None]
  - MULTIPLE DRUG OVERDOSE INTENTIONAL [None]
  - OEDEMA PERIPHERAL [None]
  - RHABDOMYOLYSIS [None]
  - PANCREATITIS ACUTE [None]
